FAERS Safety Report 6370963-6 (Version None)
Quarter: 2009Q3

REPORT INFORMATION
  Report Type: 
  Country: None (occurrence: None)
  Receive Date: 20090923
  Receipt Date: 20071008
  Transmission Date: 20100115
  Serious: Yes (Other)
  Sender: FDA-Public Use
  Company Number: US-ASTRAZENECA-2006UW22619

PATIENT
  Age: 35 Year
  Sex: Male
  Weight: 145.1 kg

DRUGS (12)
  1. SEROQUEL [Suspect]
     Indication: ANXIETY
     Route: 048
     Dates: start: 20010101, end: 20040101
  2. SEROQUEL [Suspect]
     Indication: SLEEP DISORDER
     Route: 048
     Dates: start: 20010101, end: 20040101
  3. SEROQUEL [Suspect]
     Dosage: 100 MG - 200 MG
     Route: 048
     Dates: start: 20030620
  4. SEROQUEL [Suspect]
     Dosage: 100 MG - 200 MG
     Route: 048
     Dates: start: 20030620
  5. HALDOL [Concomitant]
     Dates: start: 19970101
  6. RISPERDAL [Concomitant]
  7. ZOLOFT [Concomitant]
     Dates: start: 19970101
  8. PAXIL [Concomitant]
     Dates: start: 19970101
  9. PAXIL [Concomitant]
     Route: 048
  10. PROZAC [Concomitant]
     Route: 048
  11. CELEXA [Concomitant]
     Route: 048
  12. GLUCOVANCE [Concomitant]
     Route: 065

REACTIONS (2)
  - DIABETES MELLITUS [None]
  - DIABETIC KETOACIDOSIS [None]
